FAERS Safety Report 5492330-X (Version None)
Quarter: 2007Q4

REPORT INFORMATION
  Report Type: 
  Country: None (occurrence: None)
  Receive Date: 20071022
  Receipt Date: 20071010
  Transmission Date: 20080405
  Serious: Yes (Death)
  Sender: FDA-Public Use
  Company Number: JP-AVENTIS-200712697JP

PATIENT

DRUGS (1)
  1. LASIX [Suspect]
     Route: 048

REACTIONS (1)
  - MALNUTRITION [None]
